FAERS Safety Report 9589619 (Version 1)
Quarter: 2013Q4

REPORT INFORMATION
  Report Type: Spontaneous
  Country: US (occurrence: US)
  Receive Date: 20131003
  Receipt Date: 20131003
  Transmission Date: 20140711
  Serious: Yes (Other)
  Sender: FDA-Public Use
  Company Number: US-ROCHE-1281266

PATIENT
  Age: 90 Year
  Sex: Male

DRUGS (16)
  1. ERIVEDGE [Suspect]
     Indication: BASAL CELL CARCINOMA
     Route: 048
     Dates: start: 20130919, end: 20130921
  2. JANUMET [Concomitant]
     Indication: TYPE 2 DIABETES MELLITUS
     Route: 048
  3. AMLODIPINE [Concomitant]
     Indication: HYPERTENSION
     Dosage: AS REQUIRED
     Route: 065
  4. ASPIRIN [Concomitant]
     Route: 065
  5. VITAMIN B12 [Concomitant]
     Indication: ANAEMIA
     Route: 065
  6. DIGOXIN [Concomitant]
     Indication: ATRIAL FIBRILLATION
     Dosage: DAILY EXCEPT FOR SUNDAYS
     Route: 065
  7. SPIRIVA [Concomitant]
     Indication: CHRONIC OBSTRUCTIVE PULMONARY DISEASE
     Route: 055
  8. FUROSEMIDE [Concomitant]
     Indication: HYPERTENSION
     Route: 065
  9. GLIMEPIRIDE [Concomitant]
     Indication: TYPE 2 DIABETES MELLITUS
     Route: 065
  10. JANUVIA [Concomitant]
     Indication: TYPE 2 DIABETES MELLITUS
     Route: 065
  11. PRIMIDONE [Concomitant]
     Indication: TREMOR
     Dosage: TAKE AT BEDTIME
     Route: 065
  12. PROPANOLOL [Concomitant]
     Indication: HYPERTENSION
     Dosage: ER
     Route: 065
  13. SPIRONOLACTONE [Concomitant]
     Indication: HYPERTENSION
     Route: 065
  14. TAMSULOSIN [Concomitant]
     Dosage: AT BEDTIME
     Route: 065
  15. ALPRAZOLAM [Concomitant]
     Indication: ANXIETY
     Dosage: 3 TIMES DAILY AS NEEDED
     Route: 065
  16. SERTRALINE HCL [Concomitant]
     Indication: ANXIETY
     Dosage: AT BEDTIME
     Route: 065

REACTIONS (6)
  - Haemoptysis [Recovering/Resolving]
  - Blood glucose increased [Recovering/Resolving]
  - Urinary tract infection [Unknown]
  - Tremor [Unknown]
  - Skin discolouration [Unknown]
  - Nausea [Unknown]
